FAERS Safety Report 8915092 (Version 1)
Quarter: 2012Q4

REPORT INFORMATION
  Report Type: 
  Country: FR (occurrence: FR)
  Receive Date: 20121119
  Receipt Date: 20121119
  Transmission Date: 20130627
  Serious: Yes (Death)
  Sender: FDA-Public Use
  Company Number: FR-BRISTOL-MYERS SQUIBB COMPANY-17113853

PATIENT
  Age: 75 Year
  Sex: Female

DRUGS (6)
  1. ABILIFY [Suspect]
     Indication: BIPOLAR DISORDER
     Dosage: Started at 5 mg/d in Sep12,dose increased to 10mg in 2Nov12
     Dates: start: 201209
  2. PRAVASTATINE [Suspect]
  3. LAMICTAL [Suspect]
  4. KARDEGIC [Suspect]
  5. EXELON [Suspect]
  6. ATARAX [Suspect]

REACTIONS (1)
  - Cardiac arrest [Fatal]
